FAERS Safety Report 6097438-6 (Version None)
Quarter: 2009Q1

REPORT INFORMATION
  Report Type: 
  Country: None (occurrence: None)
  Receive Date: 20090227
  Receipt Date: 20080424
  Transmission Date: 20090719
  Serious: Yes (Other)
  Sender: FDA-Public Use
  Company Number: A0724553A

PATIENT
  Age: 57 Year
  Sex: Female

DRUGS (1)
  1. IMITREX [Suspect]
     Indication: DRUG USE FOR UNKNOWN INDICATION
     Dosage: 6MG WEEKLY
     Route: 058
     Dates: start: 20060101

REACTIONS (4)
  - ANXIETY [None]
  - ARTHRALGIA [None]
  - CARDIAC ENZYMES INCREASED [None]
  - MYOCARDIAL ISCHAEMIA [None]
